FAERS Safety Report 5323917-2 (Version None)
Quarter: 2007Q2

REPORT INFORMATION
  Report Type: 
  Country: None (occurrence: None)
  Receive Date: 20070509
  Receipt Date: 20070509
  Transmission Date: 20071010
  Serious: No
  Sender: FDA-Public Use
  Company Number: None

PATIENT
  Age: 59 Year
  Sex: Male
  Weight: 78.4723 kg

DRUGS (1)
  1. MAGNEVIST [Suspect]
     Indication: NEUROPATHY PERIPHERAL
     Dosage: 15ML ONCE IV BOLUS
     Route: 040

REACTIONS (1)
  - NEPHROGENIC FIBROSING DERMOPATHY [None]
